FAERS Safety Report 8433814-1 (Version None)
Quarter: 2012Q2

REPORT INFORMATION
  Report Type: 
  Country: None (occurrence: None)
  Receive Date: 20120613
  Receipt Date: 20120608
  Transmission Date: 20120825
  Serious: Yes (Other)
  Sender: FDA-Public Use
  Company Number: US-PFIZER INC-2012039519

PATIENT
  Sex: Female
  Weight: 222 kg

DRUGS (4)
  1. NEURONTIN [Suspect]
     Indication: DIABETIC NEUROPATHY
     Dosage: 600 MG, 1X/DAY
     Route: 048
     Dates: start: 20020101
  2. HUMULIN 70/30 [Concomitant]
     Indication: DIABETES MELLITUS
     Dosage: 70/30 %, UNK
  3. LIPITOR [Suspect]
     Indication: BLOOD CHOLESTEROL INCREASED
     Dosage: 40 MG, 1X/DAY
     Route: 048
     Dates: start: 20100201
  4. LIPITOR [Suspect]
     Indication: BLOOD TRIGLYCERIDES

REACTIONS (4)
  - NEOPLASM MALIGNANT [None]
  - LYMPHADENOPATHY [None]
  - BLOOD GLUCOSE INCREASED [None]
  - ARRHYTHMIA [None]
